FAERS Safety Report 5101014-9 (Version None)
Quarter: 2006Q3

REPORT INFORMATION
  Report Type: 
  Country: None (occurrence: None)
  Receive Date: 20060906
  Receipt Date: 20060816
  Transmission Date: 20061208
  Serious: Yes (Life-Threatening, Hospitalization, Other)
  Sender: FDA-Public Use
  Company Number: 2006RR-03381

PATIENT
  Age: 55 Year
  Sex: Female

DRUGS (3)
  1. FLUCONAZOLE [Suspect]
     Indication: PNEUMONIA
     Dosage: 200 MG, INTRAVENOUS
     Route: 042
  2. AMINOPHYLLINE(AMINOPHYLLINE) [Suspect]
     Dosage: INTRAVENOUS
     Route: 042
  3. LIDOCAINE [Concomitant]

REACTIONS (5)
  - BLOOD CALCIUM DECREASED [None]
  - BLOOD MAGNESIUM INCREASED [None]
  - BLOOD POTASSIUM DECREASED [None]
  - BLOOD SODIUM INCREASED [None]
  - TORSADE DE POINTES [None]
